FAERS Safety Report 4365862-5 (Version None)
Quarter: 2004Q2

REPORT INFORMATION
  Report Type: 
  Country: None (occurrence: None)
  Receive Date: 20040527
  Receipt Date: 20030310
  Transmission Date: 20050107
  Serious: Yes (Hospitalization, Other)
  Sender: FDA-Public Use
  Company Number: 200312255US

PATIENT
  Sex: Female

DRUGS (11)
  1. ARAVA [Suspect]
     Indication: RHEUMATOID ARTHRITIS
     Route: 048
     Dates: start: 19990206, end: 19990405
  2. VOLTAREN [Concomitant]
     Indication: RHEUMATOID ARTHRITIS
     Route: 048
     Dates: end: 19990401
  3. AZULFIDINE [Concomitant]
     Dosage: DOSE: UNK
  4. CYTOXAN [Concomitant]
     Dosage: DOSE: UNK
     Dates: start: 19990401, end: 19991014
  5. ADRIAMYCIN PFS [Concomitant]
     Dosage: DOSE: UNK
     Dates: start: 19990401, end: 19991014
  6. VINCRISTINE [Concomitant]
     Dosage: DOSE: UNK
     Dates: start: 19990401, end: 19991014
  7. PREDNISONE [Concomitant]
     Dosage: DOSE: UNK
     Dates: start: 19990401, end: 19991014
  8. RITUXAN [Concomitant]
     Dosage: DOSE: UNK
     Dates: start: 19990401, end: 19991014
  9. GOLD [Concomitant]
  10. IMURAN [Concomitant]
  11. NSAID'S [Concomitant]

REACTIONS (28)
  - ABDOMINAL DISCOMFORT [None]
  - ABDOMINAL MASS [None]
  - BLOOD ALBUMIN DECREASED [None]
  - BLOOD CALCIUM DECREASED [None]
  - BLOOD IMMUNOGLOBULIN M INCREASED [None]
  - CONSTIPATION [None]
  - DECREASED APPETITE [None]
  - DEHYDRATION [None]
  - DIARRHOEA [None]
  - DIFFUSE LARGE B-CELL LYMPHOMA [None]
  - DIZZINESS [None]
  - DYSPEPSIA [None]
  - DYSPNOEA EXERTIONAL [None]
  - ERYTHEMA MULTIFORME [None]
  - HYPERHIDROSIS [None]
  - INFLUENZA LIKE ILLNESS [None]
  - LOOSE STOOLS [None]
  - LYMPHADENOPATHY MEDIASTINAL [None]
  - MALNUTRITION [None]
  - MICROCYTIC ANAEMIA [None]
  - NAUSEA [None]
  - NON-HODGKIN'S LYMPHOMA [None]
  - OEDEMA PERIPHERAL [None]
  - PANCYTOPENIA [None]
  - PARAESTHESIA [None]
  - PLEURAL EFFUSION [None]
  - RASH [None]
  - URINE ANALYSIS ABNORMAL [None]
